FAERS Safety Report 7388220-8 (Version None)
Quarter: 2011Q2

REPORT INFORMATION
  Report Type: 
  Country: None (occurrence: None)
  Receive Date: 20110401
  Receipt Date: 20110323
  Transmission Date: 20111010
  Serious: Yes (Other)
  Sender: FDA-Public Use
  Company Number: ES-AMGEN-ESPSP2011015084

PATIENT
  Age: 43 Year
  Sex: Male

DRUGS (5)
  1. ARAVA [Concomitant]
     Dosage: 20, UNSPECIFIED UNITS AND FREQUENCY
     Route: 048
     Dates: start: 20100615
  2. BUTAZOLIDINA                       /00009301/ [Concomitant]
  3. ENBREL [Suspect]
     Indication: PSORIATIC ARTHROPATHY
     Dosage: UNK UNK, ONE TIME DOSE
     Route: 058
     Dates: start: 20110217, end: 20110217
  4. ZAMENE [Concomitant]
     Dosage: 30, UNSPECIFIED UNITS AND FREQUENCY
     Route: 048
     Dates: start: 20090525, end: 20110304
  5. ENBREL [Suspect]
     Dosage: SINGLE DOSE
     Route: 058
     Dates: start: 20110217, end: 20110217

REACTIONS (2)
  - TOXIC SKIN ERUPTION [None]
  - MOVEMENT DISORDER [None]
